FAERS Safety Report 8031103-0 (Version None)
Quarter: 2012Q1

REPORT INFORMATION
  Report Type: 
  Country: None (occurrence: None)
  Receive Date: 20120105
  Receipt Date: 20111223
  Transmission Date: 20120608
  Serious: Yes (Other)
  Sender: FDA-Public Use
  Company Number: 2011AP003172

PATIENT
  Age: 22 Year
  Sex: Female

DRUGS (3)
  1. RISPERIDONE [Suspect]
     Indication: DISTURBANCE IN SOCIAL BEHAVIOUR
     Dosage: PO; 1.5 MG;PO;QD
     Route: 048
     Dates: start: 20100708, end: 20100929
  2. RISPERIDONE [Suspect]
     Indication: DISTURBANCE IN SOCIAL BEHAVIOUR
     Dosage: PO; 1.5 MG;PO;QD
     Route: 048
     Dates: start: 20100415
  3. ORPHENADRINE CITRATE [Concomitant]

REACTIONS (3)
  - ANXIETY [None]
  - DISTURBANCE IN SOCIAL BEHAVIOUR [None]
  - OCULOGYRIC CRISIS [None]
